FAERS Safety Report 15304844 (Version 1)
Quarter: 2018Q3

REPORT INFORMATION
  Report Type: Spontaneous
  Country: DE (occurrence: DE)
  Receive Date: 20180822
  Receipt Date: 20180822
  Transmission Date: 20181010
  Serious: Yes (Hospitalization, Other)
  Sender: FDA-Public Use
  Company Number: DE-TEVA-2018-DE-945269

PATIENT
  Age: 52 Year
  Sex: Female

DRUGS (2)
  1. CLOZAPIN [Suspect]
     Active Substance: CLOZAPINE
     Dosage: 275 MILLIGRAM DAILY;
     Route: 048
     Dates: start: 2007, end: 20171013
  2. RISPERIDON [Suspect]
     Active Substance: RISPERIDONE
     Dosage: 2 MILLIGRAM DAILY;
     Route: 048
     Dates: start: 2007, end: 20171013

REACTIONS (2)
  - Hyponatraemia [Recovered/Resolved]
  - Generalised tonic-clonic seizure [Recovered/Resolved]

NARRATIVE: CASE EVENT DATE: 20171013
